FAERS Safety Report 6680137-7 (Version None)
Quarter: 2010Q2

REPORT INFORMATION
  Report Type: 
  Country: None (occurrence: None)
  Receive Date: 20100413
  Receipt Date: 20100401
  Transmission Date: 20101027
  Serious: Yes (Other)
  Sender: FDA-Public Use
  Company Number: US-PFIZER INC-2010042597

PATIENT
  Sex: Female
  Weight: 81.179 kg

DRUGS (2)
  1. CHANTIX [Suspect]
     Indication: SMOKING CESSATION THERAPY
     Dosage: UNK MG, UNK
     Route: 048
  2. EFFEXOR [Concomitant]
     Indication: NERVOUSNESS
     Dosage: 75 MG, 1X/DAY
     Route: 048
     Dates: start: 20100101

REACTIONS (3)
  - BLOOD CHOLESTEROL INCREASED [None]
  - BLOOD TRIGLYCERIDES INCREASED [None]
  - NERVOUSNESS [None]
